FAERS Safety Report 5255861-3 (Version None)
Quarter: 2007Q1

REPORT INFORMATION
  Report Type: 
  Country: None (occurrence: None)
  Receive Date: 20070301
  Receipt Date: 20070222
  Transmission Date: 20070707
  Serious: Yes (Other)
  Sender: FDA-Public Use
  Company Number: CHPA2007US02957

PATIENT

DRUGS (4)
  1. EXCEDRIN UNKNOWN (NCH) (UNKNOWN) UNKNOWN [Suspect]
     Indication: HEADACHE
     Dosage: 1-2 TABLETS, PRN, ORAL
     Route: 048
  2. PERCOCET [Concomitant]
  3. VICODIN [Concomitant]
  4. TYLENOL W/ CODEINE NO. 3 [Concomitant]

REACTIONS (2)
  - BRAIN NEOPLASM BENIGN [None]
  - HAEMORRHAGE INTRACRANIAL [None]
